FAERS Safety Report 13165026 (Version 1)
Quarter: 2017Q1

REPORT INFORMATION
  Report Type: Spontaneous
  Country: US (occurrence: US)
  Receive Date: 20170130
  Receipt Date: 20170130
  Transmission Date: 20170428
  Serious: No
  Sender: FDA-Public Use
  Company Number: US-TEIKOKU PHARMA USA-TPU2017-00059

PATIENT
  Sex: Male
  Weight: 78.09 kg

DRUGS (3)
  1. LIDODERM [Suspect]
     Active Substance: LIDOCAINE
     Indication: GROIN PAIN
  2. DICLOFENAC [Concomitant]
     Active Substance: DICLOFENAC
     Route: 048
  3. LIDODERM [Suspect]
     Active Substance: LIDOCAINE
     Indication: ARTHRALGIA
     Dosage: CUT UP PATCHES AND APPLY TO PAINFUL AREA
     Dates: start: 2015

REACTIONS (1)
  - Expired product administered [Unknown]

NARRATIVE: CASE EVENT DATE: 2016
